FAERS Safety Report 21362127 (Version 3)
Quarter: 2022Q4

REPORT INFORMATION
  Report Type: Report from Study
  Country: CA (occurrence: CA)
  Receive Date: 20220922
  Receipt Date: 20221017
  Transmission Date: 20230113
  Serious: Yes (Other)
  Sender: FDA-Public Use
  Company Number: CA-ABBVIE-4127996

PATIENT
  Age: 50 Year
  Sex: Female

DRUGS (5)
  1. RINVOQ [Suspect]
     Active Substance: UPADACITINIB
     Indication: Dermatitis atopic
     Route: 048
     Dates: start: 20220115, end: 20220913
  2. METHOTREXATE [Concomitant]
     Active Substance: METHOTREXATE
     Indication: Dermatitis atopic
     Route: 048
     Dates: start: 2016, end: 2019
  3. CYCLOSPORINE [Concomitant]
     Active Substance: CYCLOSPORINE
     Indication: Dermatitis atopic
     Route: 048
  4. Protocole apremilast [Concomitant]
     Indication: Dermatitis atopic
     Route: 048
     Dates: start: 2015
  5. DUPILUMAB [Concomitant]
     Active Substance: DUPILUMAB
     Indication: Dermatitis atopic
     Route: 058
     Dates: start: 202106, end: 202112

REACTIONS (6)
  - Gastrointestinal cancer metastatic [Not Recovered/Not Resolved]
  - Colon neoplasm [Unknown]
  - Colon injury [Unknown]
  - Adenocarcinoma [Unknown]
  - Normochromic anaemia [Unknown]
  - Metastases to liver [Unknown]

NARRATIVE: CASE EVENT DATE: 20220907
